FAERS Safety Report 6481867-2 (Version None)
Quarter: 2009Q4

REPORT INFORMATION
  Report Type: 
  Country: None (occurrence: None)
  Receive Date: 20091208
  Receipt Date: 20090327
  Transmission Date: 20100525
  Serious: No
  Sender: FDA-Public Use
  Company Number: US-AMGEN-KDL340642

PATIENT
  Sex: Female

DRUGS (4)
  1. ENBREL [Suspect]
     Indication: RHEUMATOID ARTHRITIS
     Route: 058
     Dates: start: 20090320
  2. ENBREL [Suspect]
     Indication: SYSTEMIC LUPUS ERYTHEMATOSUS
  3. ENBREL [Suspect]
     Indication: ARTHRITIS
  4. PLAQUENIL [Concomitant]
     Route: 048

REACTIONS (4)
  - CHILLS [None]
  - HEADACHE [None]
  - HYPERHIDROSIS [None]
  - RHEUMATOID ARTHRITIS [None]
